FAERS Safety Report 6173942-7 (Version None)
Quarter: 2009Q2

REPORT INFORMATION
  Report Type: 
  Country: None (occurrence: None)
  Receive Date: 20090430
  Receipt Date: 20090421
  Transmission Date: 20091009
  Serious: Yes (Hospitalization)
  Sender: FDA-Public Use
  Company Number: US-PFIZER INC-2004097792

PATIENT
  Sex: Female
  Weight: 83 kg

DRUGS (12)
  1. SUNITINIB MALATE [Suspect]
     Indication: RENAL CANCER METASTATIC
     Dosage: 50 MG, 1X/DAY
     Route: 048
     Dates: start: 20040714, end: 20040810
  2. SUNITINIB MALATE [Suspect]
     Dosage: 50 MG, 1X/DAY
     Route: 048
     Dates: start: 20040825, end: 20040908
  3. SUNITINIB MALATE [Suspect]
     Dosage: 37.5 MG, 1X/DAY
     Route: 048
     Dates: start: 20041006, end: 20041101
  4. DOCUSATE SODIUM [Concomitant]
     Route: 048
     Dates: start: 20040729
  5. GELCLAIR [Concomitant]
     Route: 048
     Dates: start: 20040812
  6. RANITIDINE HCL [Concomitant]
     Route: 048
     Dates: start: 20041103
  7. WARFARIN [Concomitant]
     Route: 048
     Dates: start: 20021015
  8. QUINAPRIL HCL [Concomitant]
     Route: 048
     Dates: start: 20021120
  9. CELECOXIB [Concomitant]
     Route: 048
     Dates: start: 20021120
  10. METOPROLOL TARTRATE [Concomitant]
     Route: 048
     Dates: start: 20030924
  11. FUROSEMIDE [Concomitant]
     Route: 048
     Dates: start: 20030924
  12. MONTELUKAST SODIUM [Concomitant]
     Route: 048
     Dates: start: 20020708

REACTIONS (1)
  - INTERNATIONAL NORMALISED RATIO INCREASED [None]
